FAERS Safety Report 5478090-7 (Version None)
Quarter: 2007Q4

REPORT INFORMATION
  Report Type: 
  Country: None (occurrence: None)
  Receive Date: 20071005
  Receipt Date: 20061005
  Transmission Date: 20080405
  Serious: No
  Sender: FDA-Public Use
  Company Number: US-BRISTOL-MYERS SQUIBB COMPANY-13531728

PATIENT
  Age: 67 Year
  Sex: Male
  Weight: 87 kg

DRUGS (6)
  1. AVAPRO [Suspect]
     Indication: HYPERTENSION
     Dosage: THE CONSUMER IS USING PROFESSIONAL SAMPLES.
     Route: 048
     Dates: start: 20060901
  2. ASPIRIN [Concomitant]
  3. TRICOR [Concomitant]
  4. SYNTHROID [Concomitant]
  5. NORVASC [Concomitant]
  6. ZETIA [Concomitant]

REACTIONS (1)
  - DYSGEUSIA [None]
